FAERS Safety Report 8108710-X (Version None)
Quarter: 2012Q1

REPORT INFORMATION
  Report Type: 
  Country: None (occurrence: None)
  Receive Date: 20120202
  Receipt Date: 20120103
  Transmission Date: 20120608
  Serious: No
  Sender: FDA-Public Use
  Company Number: US-AMGEN-USASP2011025584

PATIENT
  Age: 33 Year
  Sex: Female

DRUGS (2)
  1. ENBREL [Suspect]
     Indication: ECZEMA
     Dosage: 50 MG, QWK
     Route: 058
     Dates: start: 20100901, end: 20101201
  2. ENBREL [Suspect]
     Indication: PSORIASIS
     Dosage: 50 MG, QWK
     Route: 058
     Dates: start: 20100501, end: 20101201

REACTIONS (3)
  - ECZEMA [None]
  - STAPHYLOCOCCAL SKIN INFECTION [None]
  - PSORIASIS [None]
